FAERS Safety Report 5939572-4 (Version None)
Quarter: 2008Q4

REPORT INFORMATION
  Report Type: 
  Country: None (occurrence: None)
  Receive Date: 20081030
  Receipt Date: 20081015
  Transmission Date: 20090506
  Serious: Yes (Other)
  Sender: FDA-Public Use
  Company Number: ISPH-2008-0165

PATIENT
  Age: 79 Year
  Sex: Female

DRUGS (6)
  1. AZASITE [Suspect]
     Indication: BLEPHARITIS
     Dosage: 1 GTT, SINGLE, OPTHALMIC
     Route: 047
     Dates: start: 20080731, end: 20080731
  2. THYROID TAB [Concomitant]
  3. AMBIEN [Concomitant]
  4. ACTONEL [Concomitant]
  5. VITAMIN C (SODIUM ASCORBATE) [Concomitant]
  6. VITAMIN B12 (HYDROXOCOBALAMIN ACETATE) [Concomitant]

REACTIONS (3)
  - BLINDNESS TRANSIENT [None]
  - VISUAL ACUITY REDUCED [None]
  - VISUAL FIELD DEFECT [None]
